FAERS Safety Report 8336953-9 (Version None)
Quarter: 2012Q2

REPORT INFORMATION
  Report Type: 
  Country: None (occurrence: None)
  Receive Date: 20120504
  Receipt Date: 20120405
  Transmission Date: 20120825
  Serious: No
  Sender: FDA-Public Use
  Company Number: US-GLAXOSMITHKLINE-A0972449A

PATIENT
  Sex: Male

DRUGS (2)
  1. GABAPENTIN [Suspect]
  2. HORIZANT [Suspect]
     Route: 065

REACTIONS (1)
  - OEDEMA [None]
